FAERS Safety Report 4893158-1 (Version None)
Quarter: 2005Q4

REPORT INFORMATION
  Report Type: 
  Country: None (occurrence: None)
  Receive Date: 20051223
  Receipt Date: 20050915
  Transmission Date: 20060501
  Serious: Yes (Other)
  Sender: FDA-Public Use
  Company Number: PHEH2005US08667

PATIENT
  Age: 43 Year
  Sex: Male

DRUGS (4)
  1. CLOZARIL [Suspect]
     Indication: SCHIZOPHRENIA, PARANOID TYPE
     Dosage: ORAL
     Route: 048
     Dates: start: 19960101
  2. DEPAKOTE [Suspect]
     Indication: CONVULSION
     Dosage: 250 MG; 500 MG : BID
     Dates: end: 20050801
  3. DEPAKOTE [Suspect]
     Indication: CONVULSION
     Dosage: 250 MG; 500 MG : BID
     Dates: start: 19960101
  4. SEROQUEL [Concomitant]

REACTIONS (2)
  - CONVULSION [None]
  - THROMBOCYTOPENIA [None]
